FAERS Safety Report 5578317-7 (Version None)
Quarter: 2007Q4

REPORT INFORMATION
  Report Type: 
  Country: None (occurrence: None)
  Receive Date: 20071130
  Receipt Date: 20070629
  Transmission Date: 20080405
  Serious: No
  Sender: FDA-Public Use
  Company Number: US200707000984

PATIENT
  Age: 42 Year
  Sex: Female

DRUGS (2)
  1. BYETTA [Suspect]
     Indication: TYPE 2 DIABETES MELLITUS
     Dosage: 5 UG, 2/D, SUBCUTANEOUS
     Route: 058
     Dates: start: 20070601
  2. METFORMIN (METFORMIN) UNK TO UNK [Concomitant]

REACTIONS (7)
  - ABDOMINAL PAIN UPPER [None]
  - DECREASED APPETITE [None]
  - FACIAL PAIN [None]
  - HEADACHE [None]
  - NAUSEA [None]
  - PAIN IN JAW [None]
  - TOOTHACHE [None]
